FAERS Safety Report 5354381-5 (Version None)
Quarter: 2007Q2

REPORT INFORMATION
  Report Type: 
  Country: None (occurrence: None)
  Receive Date: 20070612
  Receipt Date: 20070531
  Transmission Date: 20071010
  Serious: Yes (Other)
  Sender: FDA-Public Use
  Company Number: US-JNJFOC-20070400563

PATIENT
  Sex: Female
  Weight: 60.78 kg

DRUGS (8)
  1. DURAGESIC-100 [Suspect]
     Route: 062
  2. DURAGESIC-100 [Suspect]
     Indication: BACK PAIN
     Route: 062
  3. PROVIGIL [Concomitant]
     Indication: HYPERSOMNIA
     Dosage: ONE HALF TO ONE TABLET, OCCASIONALLY
     Route: 065
  4. ACTIQUE [Concomitant]
     Dosage: NOT REGULARLY
     Route: 065
  5. ZYRTEC [Concomitant]
     Indication: SINUS DISORDER
     Dosage: NOT REGULARLY
     Route: 048
  6. LEXAPRO [Concomitant]
     Route: 048
  7. ULTRAM [Concomitant]
     Indication: PAIN
     Dosage: NOT REGULARLY
     Route: 048
  8. FENTORA [Concomitant]
     Indication: PAIN
     Dosage: BREAKTHROUGH PAIN ONLY - NOT REGULARLY
     Route: 065

REACTIONS (3)
  - MUSCLE RIGIDITY [None]
  - MUSCLE TIGHTNESS [None]
  - SYNCOPE [None]
